FAERS Safety Report 4355182-7 (Version None)
Quarter: 2004Q2

REPORT INFORMATION
  Report Type: 
  Country: None (occurrence: None)
  Receive Date: 20040504
  Receipt Date: 20040419
  Transmission Date: 20050107
  Serious: Yes (Hospitalization)
  Sender: FDA-Public Use
  Company Number: DE-SHR-04-021941

PATIENT
  Age: 42 Year
  Sex: Female

DRUGS (1)
  1. BETASERON [Suspect]
     Indication: MULTIPLE SCLEROSIS
     Dosage: 8 MIU, EVERY 2D, SUBCUTANEOUS
     Route: 058
     Dates: start: 20010417, end: 20040229

REACTIONS (3)
  - ARRHYTHMIA [None]
  - SUPRAVENTRICULAR EXTRASYSTOLES [None]
  - VENTRICULAR EXTRASYSTOLES [None]
